FAERS Safety Report 7255805-9 (Version None)
Quarter: 2011Q1

REPORT INFORMATION
  Report Type: 
  Country: None (occurrence: None)
  Receive Date: 20110129
  Receipt Date: 20100809
  Transmission Date: 20110831
  Serious: Yes (Other)
  Sender: FDA-Public Use
  Company Number: PR-ABBOTT-10P-131-0660725-00

PATIENT
  Sex: Female

DRUGS (2)
  1. TARKA [Concomitant]
     Indication: HYPERTENSION
     Dosage: 4/240MG-1 TABLET DAILY
     Route: 048
  2. HUMIRA [Suspect]
     Indication: PSORIASIS
     Route: 058
     Dates: start: 20080901, end: 20100728

REACTIONS (1)
  - CARDIAC FAILURE CONGESTIVE [None]
